FAERS Safety Report 4988495-6 (Version None)
Quarter: 2006Q2

REPORT INFORMATION
  Report Type: 
  Country: None (occurrence: None)
  Receive Date: 20060502
  Receipt Date: 20051209
  Transmission Date: 20061013
  Serious: No
  Sender: FDA-Public Use
  Company Number: 428254

PATIENT
  Age: 60 Year
  Sex: Male

DRUGS (4)
  1. AMOXICILLIN [Suspect]
     Indication: PROPHYLAXIS
     Dosage: 2000MG SINGLE DOSE
     Route: 048
     Dates: start: 20051101, end: 20051101
  2. COREG [Suspect]
     Dosage: 6.25MG TWICE PER DAY
     Route: 048
     Dates: start: 20050810
  3. LISINOPRIL [Concomitant]
  4. ASPIRIN [Concomitant]

REACTIONS (4)
  - ABDOMINAL DISTENSION [None]
  - DYSPEPSIA [None]
  - GASTRIC DISORDER [None]
  - HEART RATE DECREASED [None]
